FAERS Safety Report 8846094 (Version 2)
Quarter: 2013Q2

REPORT INFORMATION
  Report Type: Spontaneous
  Country: GB (occurrence: GB)
  Receive Date: 20121017
  Receipt Date: 20130419
  Transmission Date: 20140414
  Serious: Yes (Hospitalization)
  Sender: FDA-Public Use
  Company Number: PHHY2012GB088770

PATIENT
  Age: 74 Year
  Sex: Female

DRUGS (4)
  1. METHOTREXATE [Suspect]
     Dosage: 15 MG, QW
  2. PREDNISOLONE [Suspect]
     Indication: RHEUMATOID ARTHRITIS
     Dosage: 5 MG DAILY
  3. PREDNISOLONE [Suspect]
     Indication: SYNOVITIS
     Dosage: 20 MG, UNK
  4. ACETYLSALICYLIC ACID [Suspect]
     Dosage: 75 MG DAILY

REACTIONS (15)
  - Haemobilia [Recovered/Resolved]
  - Cholecystitis acute [Recovered/Resolved]
  - Hypovolaemic shock [Recovered/Resolved]
  - Respiratory alkalosis [Recovered/Resolved]
  - Abdominal pain lower [Recovered/Resolved]
  - Diarrhoea [Recovered/Resolved]
  - Vomiting [Recovered/Resolved]
  - Abdominal distension [Recovering/Resolving]
  - Liver function test abnormal [Unknown]
  - Abdominal tenderness [Unknown]
  - Pallor [Recovered/Resolved]
  - Peripheral coldness [Recovered/Resolved]
  - Metabolic alkalosis [Recovered/Resolved]
  - Intra-abdominal haematoma [Recovered/Resolved]
  - Gallbladder oedema [Recovered/Resolved]
